FAERS Safety Report 6278893-5 (Version None)
Quarter: 2009Q3

REPORT INFORMATION
  Report Type: 
  Country: None (occurrence: None)
  Receive Date: 20090723
  Receipt Date: 20090714
  Transmission Date: 20100115
  Serious: Yes (Death)
  Sender: FDA-Public Use
  Company Number: GB-RANBAXY-2009RR-25379

PATIENT
  Age: 32 Year
  Sex: Female

DRUGS (6)
  1. MEBEVERINE [Suspect]
     Route: 065
  2. CHLORDIAZEPOXIDE [Suspect]
     Route: 065
  3. ETHANOL [Suspect]
     Route: 065
  4. FLUOXETINE HCL [Suspect]
     Route: 065
  5. PARACETAMOL [Suspect]
     Route: 065
  6. VALPROIC ACID [Suspect]
     Route: 065

REACTIONS (1)
  - DEATH [None]
